FAERS Safety Report 8132215-3 (Version None)
Quarter: 2012Q1

REPORT INFORMATION
  Report Type: 
  Country: None (occurrence: None)
  Receive Date: 20120213
  Receipt Date: 20120104
  Transmission Date: 20120608
  Serious: Yes (Death)
  Sender: FDA-Public Use
  Company Number: US-COVIDIEN/TYCO HEALTHCARE/MALLINCKRODT-T201200184

PATIENT
  Age: 49 Year
  Sex: Female

DRUGS (8)
  1. CARISOPRODOL [Suspect]
     Route: 048
  2. COCAINE [Suspect]
     Route: 048
  3. MARIJUANA [Suspect]
     Route: 048
  4. TRAMADOL HCL [Suspect]
     Route: 048
  5. OPIOIDS [Suspect]
     Route: 048
  6. SALICYLATES NOS [Suspect]
     Route: 048
  7. ACETAMINOPHEN [Suspect]
     Route: 048
  8. ALPRAZOLAM [Suspect]
     Route: 048

REACTIONS (2)
  - DRUG ABUSE [None]
  - CARDIO-RESPIRATORY ARREST [None]
